FAERS Safety Report 10525905 (Version 1)
Quarter: 2014Q4

REPORT INFORMATION
  Report Type: Spontaneous
  Country: US (occurrence: US)
  Receive Date: 20141017
  Receipt Date: 20141017
  Transmission Date: 20150528
  Serious: Yes (Hospitalization)
  Sender: FDA-Public Use
  Company Number: US-GLAXOSMITHKLINE-US2014GSK008687

PATIENT
  Age: 24 Year
  Sex: Male

DRUGS (11)
  1. MAALOX ANTACID [Suspect]
     Active Substance: ALUMINUM HYDROXIDE\DIMETHICONE\MAGNESIUM HYDROXIDE
  2. VISTARIL [Suspect]
     Active Substance: HYDROXYZINE PAMOATE
  3. DULCOLAX [Suspect]
     Active Substance: BISACODYL OR DOCUSATE SODIUM
  4. COLACE [Suspect]
     Active Substance: DOCUSATE SODIUM
  5. TRILEPTAL [Suspect]
     Active Substance: OXCARBAZEPINE
  6. MIRALAX [Suspect]
     Active Substance: POLYETHYLENE GLYCOL 3350
  7. ZYPREXA ZYDIS [Suspect]
     Active Substance: OLANZAPINE
  8. NEURONTIN [Suspect]
     Active Substance: GABAPENTIN
  9. LAMICTAL [Suspect]
     Active Substance: LAMOTRIGINE
     Route: 048
  10. PROLIXIN [Suspect]
     Active Substance: FLUPHENAZINE HYDROCHLORIDE
  11. ILOPERIDONE [Suspect]
     Active Substance: ILOPERIDONE

REACTIONS (3)
  - Asthenia [Unknown]
  - Skin discolouration [Unknown]
  - Vein discolouration [Unknown]

NARRATIVE: CASE EVENT DATE: 20140907
